FAERS Safety Report 5408391-X (Version None)
Quarter: 2007Q3

REPORT INFORMATION
  Report Type: 
  Country: None (occurrence: None)
  Receive Date: 20070806
  Receipt Date: 20070719
  Transmission Date: 20080115
  Serious: Yes (Death)
  Sender: FDA-Public Use
  Company Number: 200707IM000292

PATIENT
  Age: 51 Year
  Sex: Male

DRUGS (1)
  1. ACTIMMUNE [Suspect]
     Indication: ENDOCARDITIS Q FEVER
     Dates: start: 20060401

REACTIONS (3)
  - DISEASE RECURRENCE [None]
  - ENDOCARDITIS Q FEVER [None]
  - MULTI-ORGAN FAILURE [None]
